FAERS Safety Report 13290001 (Version 3)
Quarter: 2018Q1

REPORT INFORMATION
  Report Type: Spontaneous
  Country: US (occurrence: US)
  Receive Date: 20170302
  Receipt Date: 20180105
  Transmission Date: 20180508
  Serious: Yes (Other)
  Sender: FDA-Public Use
  Company Number: US-PFIZER INC-2017086568

PATIENT
  Age: 5 Decade
  Sex: Male

DRUGS (1)
  1. ATORVASTATIN CALCIUM. [Suspect]
     Active Substance: ATORVASTATIN CALCIUM
     Dosage: 10 MG, UNK

REACTIONS (4)
  - Muscular weakness [Recovering/Resolving]
  - Myalgia [Recovering/Resolving]
  - Dyspnoea [Recovering/Resolving]
  - Mitochondrial myopathy [Recovering/Resolving]
